FAERS Safety Report 10558447 (Version 1)
Quarter: 2014Q4

REPORT INFORMATION
  Report Type: Spontaneous
  Country: FR (occurrence: FR)
  Receive Date: 20141031
  Receipt Date: 20141031
  Transmission Date: 20150529
  Serious: Yes (Hospitalization)
  Sender: FDA-Public Use
  Company Number: FR-SA-2014SA144562

PATIENT
  Age: 76 Year
  Sex: Male

DRUGS (5)
  1. ELIQUIS [Suspect]
     Active Substance: APIXABAN
     Route: 048
     Dates: end: 20140902
  2. SIMVASTATIN. [Concomitant]
     Active Substance: SIMVASTATIN
     Dosage: FREQUENCY IN THE EVENING
  3. CLOPIDOGREL BISULFATE. [Suspect]
     Active Substance: CLOPIDOGREL BISULFATE
     Route: 048
     Dates: end: 20140902
  4. PERINDOPRIL [Concomitant]
     Active Substance: PERINDOPRIL
     Dosage: FREQUENCY IN THE MORNING
  5. BISOCE [Concomitant]
     Active Substance: BISOPROLOL
     Dosage: FREQUENCY IN THE MORNING

REACTIONS (17)
  - Haematoma [Recovering/Resolving]
  - Chest pain [Unknown]
  - Coma scale abnormal [Recovering/Resolving]
  - Fall [Recovering/Resolving]
  - Amnesia [Recovering/Resolving]
  - Cerebrovascular accident [Recovering/Resolving]
  - Palpitations [Recovering/Resolving]
  - Head injury [Recovering/Resolving]
  - Drug interaction [Unknown]
  - Dermabrasion [Recovering/Resolving]
  - Malaise [Recovering/Resolving]
  - Hot flush [Recovering/Resolving]
  - Musculoskeletal pain [Recovering/Resolving]
  - Subarachnoid haemorrhage [Recovering/Resolving]
  - Balance disorder [Recovered/Resolved]
  - Loss of consciousness [Recovered/Resolved]
  - Dizziness [Recovered/Resolved]

NARRATIVE: CASE EVENT DATE: 20140902
